FAERS Safety Report 5411129-3 (Version None)
Quarter: 2007Q3

REPORT INFORMATION
  Report Type: 
  Country: None (occurrence: None)
  Receive Date: 20070810
  Receipt Date: 20070807
  Transmission Date: 20080115
  Serious: Yes (Life-Threatening, Hospitalization)
  Sender: FDA-Public Use
  Company Number: PHBS2000AU10243

PATIENT
  Age: 80 Year
  Sex: Female
  Weight: 80 kg

DRUGS (7)
  1. CELEBREX [Suspect]
  2. NEORAL [Suspect]
     Indication: DERMATITIS
     Dosage: 300 MG/D
     Route: 048
     Dates: start: 20000925, end: 20001005
  3. COVERSYL [Concomitant]
     Indication: HYPERTENSION
     Dosage: 4 MG, QD
  4. ZOCOR [Concomitant]
     Indication: HYPERCHOLESTEROLAEMIA
     Dosage: 80 MG/D
  5. ATROVENT [Concomitant]
     Dosage: BID
  6. BRICANYL [Concomitant]
     Dosage: UNK, BID
  7. IVERMECTIN [Concomitant]
     Dosage: 6 MG/D

REACTIONS (7)
  - AMAUROSIS FUGAX [None]
  - BLINDNESS TRANSIENT [None]
  - BLOOD CREATININE INCREASED [None]
  - MALAISE [None]
  - PANIC ATTACK [None]
  - RENAL FAILURE ACUTE [None]
  - VOMITING [None]
